FAERS Safety Report 7486584 (Version 2)
Quarter: 2012Q4

REPORT INFORMATION
  Report Type: 
  Country: US (occurrence: US)
  Receive Date: 20100719
  Receipt Date: 20121011
  Transmission Date: 20130627
  Serious: Yes (Death, Other)
  Sender: FDA-Public Use
  Company Number: US-RANBAXY-2010US-35641

PATIENT
  Age: 70 Year
  Sex: Female

DRUGS (3)
  1. FLECAINIDE ACETATE [Suspect]
     Indication: ARRHYTHMIA
     Dosage: 50 mg, qd
     Route: 048
     Dates: start: 20100701
  2. SIMVASTATIN [Suspect]
     Indication: PRODUCT USED FOR UNKNOWN INDICATION
     Dosage: Unk, qhs
     Route: 065
  3. ASPIRIN [Suspect]
     Indication: PRODUCT USED FOR UNKNOWN INDICATION
     Dosage: UNK, bid
     Route: 065

REACTIONS (3)
  - Feeling hot [Recovered/Resolved]
  - Tachycardia [Recovered/Resolved]
  - Tachycardia [Unknown]
